FAERS Safety Report 17825957 (Version 2)
Quarter: 2020Q3

REPORT INFORMATION
  Report Type: Report from Study
  Country: RU (occurrence: RU)
  Receive Date: 20200526
  Receipt Date: 20200720
  Transmission Date: 20201102
  Serious: Yes (Other)
  Sender: FDA-Public Use
  Company Number: RU-CHIESI USA, INC.-RU-2020CHI000324

PATIENT

DRUGS (1)
  1. CUROSURF [Suspect]
     Active Substance: PORACTANT ALFA
     Indication: NEONATAL RESPIRATORY DISTRESS SYNDROME
     Dosage: UNK
     Route: 065

REACTIONS (1)
  - Neonatal pneumonia [Unknown]
